FAERS Safety Report 21149858 (Version 1)
Quarter: 2022Q3

REPORT INFORMATION
  Report Type: Spontaneous
  Country: US (occurrence: None)
  Receive Date: 20220729
  Receipt Date: 20220729
  Transmission Date: 20221027
  Serious: No
  Sender: FDA-Public Use
  Company Number: None

PATIENT
  Age: 32 Year
  Sex: Female
  Weight: 63 kg

DRUGS (1)
  1. SERTRALINE HYDROCHLORIDE [Suspect]
     Active Substance: SERTRALINE HYDROCHLORIDE
     Dosage: FREQUENCY : AT BEDTIME;?
     Route: 048
     Dates: start: 20220728, end: 20220729

REACTIONS (8)
  - Confusional state [None]
  - Tremor [None]
  - Product substitution issue [None]
  - Body temperature decreased [None]
  - Muscular weakness [None]
  - Electric shock sensation [None]
  - Speech disorder [None]
  - Dysphonia [None]

NARRATIVE: CASE EVENT DATE: 20220728
